FAERS Safety Report 7683811-9 (Version None)
Quarter: 2011Q3

REPORT INFORMATION
  Report Type: 
  Country: None (occurrence: None)
  Receive Date: 20110815
  Receipt Date: 20110805
  Transmission Date: 20111222
  Serious: Yes (Other)
  Sender: FDA-Public Use
  Company Number: US-AMGEN-KDL328237

PATIENT
  Age: 76 Year
  Sex: Female

DRUGS (5)
  1. PARICALCITOL [Concomitant]
     Dosage: UNK UNK, UNK
  2. ARANESP [Suspect]
  3. LOSARTAN POTASSIUM [Concomitant]
     Dosage: UNK UNK, UNK
  4. ARANESP [Suspect]
     Indication: PRODUCT USED FOR UNKNOWN INDICATION
     Dosage: 300 A?G, Q3WK
     Route: 065
     Dates: start: 20060701
  5. WARFARIN SODIUM [Concomitant]
     Dosage: UNK UNK, UNK

REACTIONS (5)
  - THERAPEUTIC RESPONSE DECREASED [None]
  - TRANSFUSION [None]
  - HAEMODIALYSIS [None]
  - PERITONEAL DIALYSIS [None]
  - ASTHENIA [None]
